FAERS Safety Report 5399282-1 (Version None)
Quarter: 2007Q3

REPORT INFORMATION
  Report Type: 
  Country: None (occurrence: None)
  Receive Date: 20070727
  Receipt Date: 20070726
  Transmission Date: 20080115
  Serious: Yes (Other)
  Sender: FDA-Public Use
  Company Number: B0480750A

PATIENT
  Age: 75 Year
  Sex: Male

DRUGS (1)
  1. ZOVIRAX [Suspect]
     Indication: HERPES OPHTHALMIC
     Route: 047

REACTIONS (4)
  - APPLICATION SITE IRRITATION [None]
  - CORNEAL TRANSPLANT [None]
  - DRUG INEFFECTIVE [None]
  - MEDICATION ERROR [None]
